FAERS Safety Report 18469384 (Version 1)
Quarter: 2020Q4

REPORT INFORMATION
  Report Type: Report from Study
  Country: IT (occurrence: IT)
  Receive Date: 20201105
  Receipt Date: 20201105
  Transmission Date: 20210114
  Serious: Yes (Other)
  Sender: FDA-Public Use
  Company Number: IT-NEUROCRINE BIOSCIENCES INC.-2020NBI01450

PATIENT
  Age: 59 Year
  Sex: Female
  Weight: 62 kg

DRUGS (7)
  1. MADOPAR [Concomitant]
     Active Substance: BENSERAZIDE HYDROCHLORIDE\LEVODOPA
  2. MIRAPEXIN [Concomitant]
     Active Substance: PRAMIPEXOLE
     Indication: PARKINSON^S DISEASE
     Dosage: 0.52, 1 DOSAGE FORM, 1X / DAY
     Route: 048
  3. PRAMIPEXOLE. [Concomitant]
     Active Substance: PRAMIPEXOLE
     Indication: PARKINSON^S DISEASE
     Dosage: 1.05 MILLIGRAM, 1X / DAY
     Route: 048
  4. ONGENTYS [Suspect]
     Active Substance: OPICAPONE
     Indication: PARKINSON^S DISEASE
     Dosage: 1 DOSAGE FORM, 1X / DAY
     Route: 048
     Dates: start: 20200325, end: 20200329
  5. MELATONIN [Concomitant]
     Active Substance: MELATONIN
  6. DELORAZEPAM [Concomitant]
     Active Substance: DELORAZEPAM
  7. ONGENTYS [Suspect]
     Active Substance: OPICAPONE
     Dosage: 1 DOSAGE FORM, 1X / DAY
     Route: 048
     Dates: start: 20200412, end: 20200417

REACTIONS (3)
  - Therapy cessation [Unknown]
  - Myalgia [Recovered/Resolved]
  - Dystonia [Recovered/Resolved]

NARRATIVE: CASE EVENT DATE: 20200326
